FAERS Safety Report 4535849-8 (Version None)
Quarter: 2004Q4

REPORT INFORMATION
  Report Type: 
  Country: None (occurrence: None)
  Receive Date: 20041223
  Receipt Date: 20040423
  Transmission Date: 20050328
  Serious: No
  Sender: FDA-Public Use
  Company Number: US-GLAXOSMITHKLINE-A0508339A

PATIENT
  Age: 75 Year
  Sex: Male

DRUGS (6)
  1. FLONASE [Suspect]
     Indication: NASAL CONGESTION
     Dosage: 4PUFF TWICE PER DAY
     Route: 045
     Dates: start: 20040101
  2. COSOPT [Concomitant]
  3. LISINOPRIL [Concomitant]
  4. HYDROCHLOROTHIAZIDE [Concomitant]
  5. FINASTERIDE [Concomitant]
  6. DOXAZOSIN [Concomitant]

REACTIONS (2)
  - BLOOD PRESSURE INCREASED [None]
  - DRUG INEFFECTIVE [None]
